FAERS Safety Report 5801589-8 (Version None)
Quarter: 2008Q3

REPORT INFORMATION
  Report Type: 
  Country: None (occurrence: None)
  Receive Date: 20080702
  Receipt Date: 20080623
  Transmission Date: 20090109
  Serious: Yes (Death)
  Sender: FDA-Public Use
  Company Number: 08H-163-0314482-00

PATIENT
  Sex: Male

DRUGS (1)
  1. ISOFLURANE [Suspect]

REACTIONS (2)
  - DRUG ABUSE [None]
  - OVERDOSE [None]
